FAERS Safety Report 15326957 (Version 1)
Quarter: 2018Q3

REPORT INFORMATION
  Report Type: Spontaneous
  Country: US (occurrence: US)
  Receive Date: 20180828
  Receipt Date: 20180828
  Transmission Date: 20181010
  Serious: Yes (Other)
  Sender: FDA-Public Use
  Company Number: US-THE MENTHOLATUM COMPANY-2054353

PATIENT
  Age: 88 Year
  Sex: Female
  Weight: 60.91 kg

DRUGS (1)
  1. EQUATE MENTHOL PAIN RELIEVING [Suspect]
     Active Substance: MENTHOL
     Indication: PAIN
     Route: 061
     Dates: start: 20180803, end: 20180804

REACTIONS (1)
  - Blood pressure abnormal [Recovered/Resolved]

NARRATIVE: CASE EVENT DATE: 20180805
